FAERS Safety Report 23781208 (Version 2)
Quarter: 2024Q2

REPORT INFORMATION
  Report Type: Spontaneous
  Country: US (occurrence: US)
  Receive Date: 20240425
  Receipt Date: 20240430
  Transmission Date: 20240716
  Serious: Yes (Other)
  Sender: FDA-Public Use
  Company Number: US-GLAXOSMITHKLINE-US2024049995

PATIENT
  Age: 78 Year
  Sex: Female

DRUGS (1)
  1. TRELEGY ELLIPTA [Suspect]
     Active Substance: FLUTICASONE FUROATE\UMECLIDINIUM BROMIDE\VILANTEROL TRIFENATATE
     Indication: Chronic obstructive pulmonary disease
     Dosage: 1 PUFF(S), QD (200-62.5MCG INH 30 PUSE BY1 INHALATION BY MOUTH DAILY)
     Route: 055
     Dates: start: 202305

REACTIONS (2)
  - Pneumonia [Unknown]
  - Aphonia [Unknown]

NARRATIVE: CASE EVENT DATE: 20240328
